FAERS Safety Report 24535377 (Version 1)
Quarter: 2024Q4

REPORT INFORMATION
  Report Type: Spontaneous
  Country: US (occurrence: None)
  Receive Date: 20241022
  Receipt Date: 20241022
  Transmission Date: 20250114
  Serious: Yes (Hospitalization)
  Sender: Public
  Company Number: None

PATIENT
  Age: 84 Year
  Sex: Male
  Weight: 88 kg

DRUGS (2)
  1. DAPTOMYCIN [Suspect]
     Active Substance: DAPTOMYCIN
     Indication: Staphylococcal infection
     Dosage: FREQUENCY : DAILY;?
     Route: 042
     Dates: start: 20240917, end: 20241013
  2. DAPTOMYCIN [Suspect]
     Active Substance: DAPTOMYCIN
     Indication: Osteomyelitis

REACTIONS (4)
  - Pneumonitis [None]
  - Respiratory failure [None]
  - Interstitial lung disease [None]
  - Atypical pneumonia [None]

NARRATIVE: CASE EVENT DATE: 20241013
